FAERS Safety Report 4911202-X (Version None)
Quarter: 2006Q1

REPORT INFORMATION
  Report Type: 
  Country: None (occurrence: None)
  Receive Date: 20060214
  Receipt Date: 20051215
  Transmission Date: 20060701
  Serious: Yes (Hospitalization)
  Sender: FDA-Public Use
  Company Number: DE-BRISTOL-MYERS SQUIBB COMPANY-13216569

PATIENT
  Age: 74 Year
  Sex: Male

DRUGS (3)
  1. CETUXIMAB [Suspect]
     Indication: COLORECTAL CANCER
     Route: 042
     Dates: start: 20051206, end: 20051206
  2. IRINOTECAN [Suspect]
     Indication: COLORECTAL CANCER
     Dosage: DOSE INTERRUPTED THEN REDUCED PROPHYLACTICALLY.
     Route: 042
     Dates: start: 20051206, end: 20051206
  3. COUMADIN [Suspect]
     Dates: start: 20040101

REACTIONS (1)
  - COLITIS [None]
